FAERS Safety Report 5159116-7 (Version None)
Quarter: 2006Q4

REPORT INFORMATION
  Report Type: 
  Country: None (occurrence: None)
  Receive Date: 20061128
  Receipt Date: 20061109
  Transmission Date: 20070319
  Serious: Yes (Hospitalization, Other)
  Sender: FDA-Public Use
  Company Number: US-ABBOTT-06P-163-0350115-00

PATIENT
  Sex: Male
  Weight: 83.99 kg

DRUGS (1)
  1. DEPAKOTE [Suspect]
     Indication: AFFECTIVE DISORDER
     Route: 048
     Dates: start: 20050101, end: 20061001

REACTIONS (2)
  - DEPRESSION [None]
  - SUICIDAL IDEATION [None]
